FAERS Safety Report 7516981-3 (Version None)
Quarter: 2011Q2

REPORT INFORMATION
  Report Type: 
  Country: None (occurrence: None)
  Receive Date: 20110601
  Receipt Date: 20110527
  Transmission Date: 20111010
  Serious: No
  Sender: FDA-Public Use
  Company Number: US-TEVA-283883USA

PATIENT
  Sex: Female

DRUGS (1)
  1. AZILECT [Suspect]
     Indication: PARKINSON'S DISEASE

REACTIONS (3)
  - DYSKINESIA [None]
  - PARKINSONISM [None]
  - DIZZINESS [None]
